FAERS Safety Report 10029717 (Version 1)
Quarter: 2014Q1

REPORT INFORMATION
  Report Type: Spontaneous
  Country: US (occurrence: None)
  Receive Date: 20140321
  Receipt Date: 20140321
  Transmission Date: 20141002
  Serious: No
  Sender: FDA-Public Use
  Company Number: None

PATIENT
  Sex: Female

DRUGS (1)
  1. FORTEO 600MCG LILLY [Suspect]
     Indication: OSTEOPOROSIS
     Dosage: 20MCG DAILY SQ
     Route: 058
     Dates: start: 20131230

REACTIONS (7)
  - Hyperhidrosis [None]
  - Nausea [None]
  - Headache [None]
  - Palpitations [None]
  - Nervousness [None]
  - Dysgeusia [None]
  - Parosmia [None]
